FAERS Safety Report 5925172-9 (Version None)
Quarter: 2008Q3

REPORT INFORMATION
  Report Type: 
  Country: None (occurrence: None)
  Receive Date: 20080909
  Receipt Date: 20071008
  Transmission Date: 20090109
  Serious: Yes (Death)
  Sender: FDA-Public Use
  Company Number: 163-20785-07081747

PATIENT
  Age: 79 Year
  Sex: Female

DRUGS (4)
  1. THALOMID [Suspect]
     Indication: LEUKAEMIA PLASMACYTIC
     Dosage: 400 MG, 2 IN 1 D , ORAL
     Route: 048
     Dates: start: 20060801, end: 20070801
  2. THALOMID [Suspect]
     Indication: MULTIPLE MYELOMA
     Dosage: 400 MG, 2 IN 1 D , ORAL
     Route: 048
     Dates: start: 20060801, end: 20070801
  3. VELCADE [Concomitant]
  4. DOXIL [Concomitant]

REACTIONS (1)
  - INFECTION [None]
